FAERS Safety Report 4721274-3 (Version None)
Quarter: 2005Q3

REPORT INFORMATION
  Report Type: 
  Country: None (occurrence: None)
  Receive Date: 20050721
  Receipt Date: 19990806
  Transmission Date: 20060218
  Serious: No
  Sender: FDA-Public Use
  Company Number: 1999COU0926

PATIENT
  Age: 73 Year
  Sex: Female

DRUGS (11)
  1. COUMADIN [Suspect]
     Indication: ATRIAL FIBRILLATION
     Dosage: 2-4 MG DLY
     Route: 048
     Dates: start: 19960101
  2. BIAXIN [Suspect]
     Indication: BACTERIAL INFECTION
     Dosage: UNK UNK
     Route: 065
  3. VITAMIN [Concomitant]
  4. NORVASC [Concomitant]
  5. MICRO-K [Concomitant]
  6. LOPRESSOR [Concomitant]
  7. LIPITOR [Concomitant]
  8. LASIX - SLOW RELEASE [Concomitant]
  9. LANOXIN [Concomitant]
  10. HALCION [Concomitant]
  11. CORDARONE [Concomitant]

REACTIONS (4)
  - CONTUSION [None]
  - DRUG INTERACTION [None]
  - INTERNATIONAL NORMALISED RATIO INCREASED [None]
  - SINUSITIS [None]
